FAERS Safety Report 23405259 (Version 3)
Quarter: 2024Q2

REPORT INFORMATION
  Report Type: Report from Study
  Country: BR (occurrence: BR)
  Receive Date: 20240116
  Receipt Date: 20240411
  Transmission Date: 20240716
  Serious: Yes (Other)
  Sender: FDA-Public Use
  Company Number: BR-002147023-NVSC2024BR007951

PATIENT
  Age: 68 Year
  Sex: Female

DRUGS (3)
  1. KISQALI [Suspect]
     Active Substance: RIBOCICLIB
     Indication: Breast cancer
     Dosage: UNK (3 TABLETS A DAY)
     Route: 065
  2. KISQALI [Suspect]
     Active Substance: RIBOCICLIB
     Dosage: UNK (2 TABLETS, DOSE REDUCED)
     Route: 065
  3. KISQALI [Suspect]
     Active Substance: RIBOCICLIB
     Dosage: UNK
     Route: 065
     Dates: start: 20240402

REACTIONS (14)
  - Bone cancer [Unknown]
  - Feeling abnormal [Unknown]
  - Visual impairment [Recovering/Resolving]
  - Confusional state [Unknown]
  - Reading disorder [Unknown]
  - Decreased immune responsiveness [Unknown]
  - Malaise [Unknown]
  - COVID-19 [Recovered/Resolved]
  - Platelet count decreased [Unknown]
  - Pain [Unknown]
  - COVID-19 [Recovered/Resolved]
  - Pruritus [Recovering/Resolving]
  - Back pain [Unknown]
  - Product dose omission issue [Unknown]

NARRATIVE: CASE EVENT DATE: 20231225
